FAERS Safety Report 8932910 (Version 4)
Quarter: 2013Q1

REPORT INFORMATION
  Report Type: Spontaneous
  Country: JP (occurrence: JP)
  Receive Date: 20121128
  Receipt Date: 20130204
  Transmission Date: 20140127
  Serious: Yes (Life-Threatening, Hospitalization, Other)
  Sender: FDA-Public Use
  Company Number: JP-ASTELLAS-2012US011448

PATIENT
  Age: 65 Year
  Sex: Female
  Weight: 64 kg

DRUGS (19)
  1. TARCEVA [Suspect]
     Indication: LUNG NEOPLASM MALIGNANT
     Dosage: 150 MG, UID/QD
     Route: 048
     Dates: start: 20121003, end: 20121020
  2. RIVOTRIL [Suspect]
     Indication: CERVICOBRACHIAL SYNDROME
     Dosage: 0.5 MG, UID/QD
     Route: 048
     Dates: end: 20121024
  3. CLARITHROMYCIN [Suspect]
     Indication: BRONCHITIS
     Dosage: 400 MG, UID/QD
     Route: 048
     Dates: start: 20120625, end: 20121021
  4. ATORVASTATIN [Suspect]
     Indication: DYSLIPIDAEMIA
     Dosage: UNK
     Route: 048
     Dates: end: 20121024
  5. METHYCOBAL [Concomitant]
     Indication: NEUROPATHY PERIPHERAL
     Dosage: 1000 UG, UID/QD
     Route: 048
     Dates: end: 20121024
  6. MYONAL                             /00287502/ [Concomitant]
     Indication: CERVICOBRACHIAL SYNDROME
     Dosage: 150 MG, UID/QD
     Route: 048
     Dates: end: 20121024
  7. OMEPRAZOLE [Concomitant]
     Indication: GASTROOESOPHAGEAL REFLUX DISEASE
     Dosage: 20 MG, UID/QD
     Route: 048
     Dates: end: 20121024
  8. LIMAPROST ALFADEX [Concomitant]
     Indication: THROMBOANGIITIS OBLITERANS
     Dosage: UNK
     Route: 048
     Dates: end: 20121024
  9. CODEINE PHOSPHATE [Concomitant]
     Indication: COUGH
     Dosage: 6 G, UID/QD
     Route: 048
     Dates: end: 20121024
  10. SHAKUYAKUKANZOTO [Concomitant]
     Indication: MUSCLE SPASMS
     Dosage: 2.5 MG, UID/QD
     Route: 048
     Dates: end: 20121024
  11. ALINAMIN F                         /00257801/ [Concomitant]
     Indication: NEUROPATHY PERIPHERAL
     Dosage: 50 MG, UID/QD
     Route: 048
     Dates: end: 20121024
  12. FUROSEMIDE [Concomitant]
     Indication: CARDIAC FAILURE
     Dosage: 40 MG, UID/QD
     Route: 048
     Dates: end: 20121024
  13. EBRANTIL                           /00631801/ [Concomitant]
     Indication: DYSURIA
     Dosage: 30 MG, UID/QD
     Route: 048
     Dates: end: 20121024
  14. COLDRIN [Concomitant]
     Indication: COUGH
     Dosage: 75 MG, UID/QD
     Route: 048
     Dates: end: 20121024
  15. ETIZOLAM [Concomitant]
     Indication: SLEEP DISORDER
     Dosage: 0.5 MG, UID/QD
     Route: 048
     Dates: end: 20121024
  16. LOXOPROFEN                         /00890702/ [Concomitant]
     Indication: CERVICOBRACHIAL SYNDROME
     Dosage: 180 MG, UID/QD
     Route: 048
     Dates: end: 20121024
  17. MAGMITT [Concomitant]
     Indication: CONSTIPATION
     Dosage: 750 MG, UID/QD
     Route: 048
     Dates: end: 20121024
  18. BAYASPIRIN [Concomitant]
     Indication: PULMONARY EMBOLISM
     Dosage: 100 MG, UID/QD
     Route: 048
     Dates: end: 20121024
  19. GLORIAMIN                          /00518301/ [Concomitant]
     Indication: GASTRITIS
     Dosage: 2.01 G, UID/QD
     Route: 048

REACTIONS (8)
  - Ventricular tachycardia [Recovered/Resolved]
  - Electrocardiogram QT prolonged [Recovered/Resolved]
  - Hypocalcaemia [Recovered/Resolved]
  - Torsade de pointes [Unknown]
  - Vomiting [Unknown]
  - Nausea [Unknown]
  - Drug interaction [Unknown]
  - Diarrhoea [Unknown]
